FAERS Safety Report 12966272 (Version 1)
Quarter: 2016Q4

REPORT INFORMATION
  Report Type: Spontaneous
  Country: US (occurrence: US)
  Receive Date: 20161122
  Receipt Date: 20161122
  Transmission Date: 20170207
  Serious: Yes (Congenital Anomaly, Other)
  Sender: FDA-Public Use
  Company Number: US-ABBVIE-16P-163-1784294-00

PATIENT
  Sex: Male

DRUGS (1)
  1. DEPAKOTE [Suspect]
     Active Substance: DIVALPROEX SODIUM
     Indication: MATERNAL EXPOSURE TIMING UNSPECIFIED
     Route: 064

REACTIONS (12)
  - Congenital jaw malformation [Unknown]
  - Developmental delay [Unknown]
  - Communication disorder [Unknown]
  - Disturbance in attention [Unknown]
  - Abnormal behaviour [Unknown]
  - Illiteracy [Unknown]
  - Foetal exposure during pregnancy [Unknown]
  - Autism [Unknown]
  - Disturbance in social behaviour [Unknown]
  - Physical disability [Unknown]
  - Cognitive disorder [Unknown]
  - Hypotonia [Unknown]
